FAERS Safety Report 16034626 (Version 1)
Quarter: 2019Q1

REPORT INFORMATION
  Report Type: Report from Study
  Country: MX (occurrence: MX)
  Receive Date: 20190305
  Receipt Date: 20190305
  Transmission Date: 20190418
  Serious: Yes (Other)
  Sender: FDA-Public Use
  Company Number: MX-BRISTOL-MYERS SQUIBB COMPANY-BMS-2019-022666

PATIENT
  Age: 63 Year
  Sex: Male

DRUGS (1)
  1. DASATINIB. [Suspect]
     Active Substance: DASATINIB
     Indication: CHRONIC MYELOID LEUKAEMIA
     Dosage: 100 MG, UNK
     Route: 048
     Dates: start: 20180228, end: 20190201

REACTIONS (7)
  - Diarrhoea [Unknown]
  - Abdominal pain [Unknown]
  - Motor dysfunction [Unknown]
  - Oesophageal disorder [Unknown]
  - Headache [Unknown]
  - Asthenia [Unknown]
  - Visual impairment [Unknown]

NARRATIVE: CASE EVENT DATE: 20190131
